FAERS Safety Report 25135809 (Version 1)
Quarter: 2025Q1

REPORT INFORMATION
  Report Type: Spontaneous
  Country: CN (occurrence: CN)
  Receive Date: 20250328
  Receipt Date: 20250328
  Transmission Date: 20250409
  Serious: Yes (Other)
  Sender: MERCK SHARP & DOHME LLC
  Company Number: CN-009507513-2267355

PATIENT
  Age: 89 Year
  Sex: Male
  Weight: 60 kg

DRUGS (1)
  1. CILASTATIN SODIUM\IMIPENEM [Suspect]
     Active Substance: CILASTATIN SODIUM\IMIPENEM
     Indication: Pneumonia
     Dosage: 1 G, EVERY 12 HOURS (Q12H)
     Route: 041
     Dates: start: 20250303, end: 20250306

REACTIONS (2)
  - Delirium [Recovering/Resolving]
  - Incorrect dosage administered [Unknown]

NARRATIVE: CASE EVENT DATE: 20250303
